FAERS Safety Report 21777557 (Version 1)
Quarter: 2022Q4

REPORT INFORMATION
  Report Type: Spontaneous
  Country: US (occurrence: US)
  Receive Date: 20221226
  Receipt Date: 20221226
  Transmission Date: 20230112
  Serious: No
  Sender: FDA-Public Use
  Company Number: US-MIGRATION_PFIZER-2022BHV002876

PATIENT
  Sex: Female

DRUGS (1)
  1. NURTEC ODT [Suspect]
     Active Substance: RIMEGEPANT SULFATE
     Indication: Headache
     Dosage: TOOK 1 ODT BY MOUTH YESTERDAY (14OCT-2022)
     Route: 048

REACTIONS (5)
  - Headache [Unknown]
  - Dysarthria [Unknown]
  - Discomfort [Unknown]
  - Drug ineffective [Unknown]
  - Dizziness [Unknown]
